FAERS Safety Report 8907653 (Version 1)
Quarter: 2012Q4

REPORT INFORMATION
  Report Type: 
  Country: SE (occurrence: SE)
  Receive Date: 20121114
  Receipt Date: 20121114
  Transmission Date: 20130627
  Serious: Yes (Hospitalization)
  Sender: FDA-Public Use
  Company Number: SE-B.I. PHARMACEUTICALS,INC./RIDGEFIELD-2012-SW-00827SW

PATIENT
  Sex: Male

DRUGS (2)
  1. PRADAXA [Suspect]
     Dates: start: 20120817, end: 20120819
  2. WARAN [Suspect]
     Dosage: Strength: 2.5 mg

REACTIONS (7)
  - Hepatic haemorrhage [Recovered/Resolved]
  - Cholecystitis [Recovered/Resolved]
  - Pyrexia [Recovered/Resolved]
  - C-reactive protein increased [Unknown]
  - Blood alkaline phosphatase increased [Unknown]
  - Abdominal pain [Recovered/Resolved]
  - Blood creatinine increased [Unknown]
